FAERS Safety Report 4362080-1 (Version None)
Quarter: 2004Q2

REPORT INFORMATION
  Report Type: 
  Country: None (occurrence: None)
  Receive Date: 20040521
  Receipt Date: 20040301
  Transmission Date: 20050107
  Serious: No
  Sender: FDA-Public Use
  Company Number: US-GLAXOSMITHKLINE-A0500637A

PATIENT
  Age: 55 Year
  Sex: Male

DRUGS (7)
  1. WELLBUTRIN XL [Suspect]
     Indication: DEPRESSION
     Dosage: 150MG PER DAY
     Route: 048
     Dates: start: 20040203
  2. LEXAPRO [Concomitant]
  3. XANAX [Concomitant]
  4. VASERETIC [Concomitant]
  5. ZOCOR [Concomitant]
  6. IBUPROFEN [Concomitant]
     Dosage: 800MG UNKNOWN
  7. LORTAB [Concomitant]

REACTIONS (3)
  - AGITATION [None]
  - ANXIETY [None]
  - UNEXPECTED THERAPEUTIC DRUG EFFECT [None]
